FAERS Safety Report 7250428-X (Version None)
Quarter: 2011Q1

REPORT INFORMATION
  Report Type: 
  Country: None (occurrence: None)
  Receive Date: 20110128
  Receipt Date: 20110117
  Transmission Date: 20110831
  Serious: Yes (Hospitalization)
  Sender: FDA-Public Use
  Company Number: JP-AMGEN-JPNCT2010006697

PATIENT
  Age: 64 Year
  Sex: Male
  Weight: 41 kg

DRUGS (15)
  1. AZUNOL GARGLE LIQUID [Concomitant]
     Dosage: UNK
     Route: 048
  2. ZOMETA [Concomitant]
     Indication: METASTASES TO BONE
     Dosage: UNK
     Route: 041
  3. CALCIUM LEVOFOLINATE [Concomitant]
     Route: 041
     Dates: start: 20100825, end: 20101103
  4. IRINOTECAN HYDROCHLORIDE [Concomitant]
     Indication: COLORECTAL CANCER
     Route: 041
     Dates: start: 20100825, end: 20100827
  5. IRINOTECAN HYDROCHLORIDE [Concomitant]
     Route: 041
     Dates: start: 20100825, end: 20101103
  6. FLUOROURACIL [Concomitant]
     Route: 041
     Dates: start: 20100825, end: 20100827
  7. FLUOROURACIL [Concomitant]
     Route: 040
     Dates: start: 20100825, end: 20101103
  8. ASPARA-CA [Concomitant]
     Dosage: UNK
     Route: 048
  9. FLUOROURACIL [Concomitant]
     Indication: COLORECTAL CANCER
     Route: 040
     Dates: start: 20100825, end: 20100827
  10. CALCIUM LEVOFOLINATE [Concomitant]
     Indication: COLORECTAL CANCER
     Route: 041
     Dates: start: 20100825, end: 20100827
  11. PANITUMUMAB [Suspect]
     Indication: COLORECTAL CANCER
     Dosage: 6 MG/KG, Q2WK
     Route: 041
     Dates: start: 20100825, end: 20101101
  12. LOXOPROFEN [Suspect]
     Dosage: UNK UNK, UNK
     Route: 048
  13. FLUOROURACIL [Concomitant]
     Route: 041
     Dates: start: 20100825, end: 20101103
  14. ANTIHISTAMINES [Concomitant]
     Indication: PROPHYLAXIS
     Dosage: UNK
     Route: 065
  15. CORTICOSTEROIDS [Concomitant]
     Indication: PROPHYLAXIS
     Dosage: UNK
     Route: 065

REACTIONS (1)
  - GASTRIC ULCER HAEMORRHAGE [None]
